FAERS Safety Report 10510558 (Version 1)
Quarter: 2014Q4

REPORT INFORMATION
  Report Type: Spontaneous
  Country: US (occurrence: None)
  Receive Date: 20141009
  Receipt Date: 20141009
  Transmission Date: 20150528
  Serious: Yes (Life-Threatening, Hospitalization, Disabling)
  Sender: FDA-Public Use
  Company Number: None

PATIENT
  Age: 63 Year
  Sex: Female
  Weight: 65.77 kg

DRUGS (2)
  1. LYRICA [Suspect]
     Active Substance: PREGABALIN
     Indication: ABDOMINAL PAIN
     Dosage: 1 PILL Q12H TAKEN BY MOUTH
     Route: 048
     Dates: start: 20141003, end: 20141005
  2. LYRICA [Suspect]
     Active Substance: PREGABALIN
     Indication: FLANK PAIN
     Dosage: 1 PILL Q12H TAKEN BY MOUTH
     Route: 048
     Dates: start: 20141003, end: 20141005

REACTIONS (5)
  - Sensory disturbance [None]
  - Pulse absent [None]
  - Posture abnormal [None]
  - Cyanosis [None]
  - Depressed level of consciousness [None]

NARRATIVE: CASE EVENT DATE: 20141004
